FAERS Safety Report 15485715 (Version 2)
Quarter: 2018Q4

REPORT INFORMATION
  Report Type: Spontaneous
  Country: DE (occurrence: DE)
  Receive Date: 20181010
  Receipt Date: 20181102
  Transmission Date: 20190205
  Serious: Yes (Hospitalization)
  Sender: FDA-Public Use
  Company Number: DE-BIOGEN-2018BI00642127

PATIENT
  Age: 47 Year
  Sex: Female
  Weight: 88 kg

DRUGS (5)
  1. BACLOFEN. [Concomitant]
     Active Substance: BACLOFEN
     Indication: MUSCLE SPASTICITY
     Route: 065
     Dates: start: 20130617
  2. MODAFINIL. [Concomitant]
     Active Substance: MODAFINIL
     Indication: FATIGUE
     Route: 065
     Dates: start: 20170220
  3. B12 ANKERMANN [Concomitant]
     Indication: VITAMIN B12 DEFICIENCY
     Route: 065
     Dates: start: 20180221
  4. FAMPYRA [Suspect]
     Active Substance: DALFAMPRIDINE
     Indication: MUSCLE SPASTICITY
     Route: 048
     Dates: start: 20160126
  5. LEVODOPA [Concomitant]
     Active Substance: LEVODOPA
     Indication: RESTLESS LEGS SYNDROME
     Route: 065
     Dates: start: 20180130

REACTIONS (4)
  - Abdominal pain [Recovered/Resolved]
  - Herpes zoster [Recovered/Resolved]
  - Appendix disorder [Recovered/Resolved]
  - Off label use [Unknown]

NARRATIVE: CASE EVENT DATE: 20160126
